FAERS Safety Report 6366054-0 (Version None)
Quarter: 2009Q3

REPORT INFORMATION
  Report Type: 
  Country: None (occurrence: None)
  Receive Date: 20090919
  Receipt Date: 20090828
  Transmission Date: 20100115
  Serious: No
  Sender: FDA-Public Use
  Company Number: US-ABBOTT-09P-163-0594297-00

PATIENT
  Sex: Female
  Weight: 68.1 kg

DRUGS (2)
  1. HUMIRA [Suspect]
     Indication: PUSTULAR PSORIASIS
     Route: 058
     Dates: start: 20080101, end: 20090601
  2. UNKNOWN ANTIVIRAL [Concomitant]
     Indication: HERPES ZOSTER
     Dates: start: 20090825

REACTIONS (3)
  - CHEST PAIN [None]
  - HERPES ZOSTER [None]
  - LYMPHADENOPATHY [None]
